FAERS Safety Report 6639346-5 (Version None)
Quarter: 2010Q1

REPORT INFORMATION
  Report Type: 
  Country: None (occurrence: None)
  Receive Date: 20100315
  Receipt Date: 20100225
  Transmission Date: 20100710
  Serious: Yes (Death)
  Sender: FDA-Public Use
  Company Number: 2010VX000070

PATIENT
  Age: 51 Year
  Sex: Female

DRUGS (8)
  1. DIASTAT [Suspect]
     Indication: DRUG USE FOR UNKNOWN INDICATION
  2. ACETAMINOPHEN [Suspect]
     Indication: DRUG USE FOR UNKNOWN INDICATION
  3. ACETAMINOPHNE/HYDROCODONE [Suspect]
     Indication: DRUG USE FOR UNKNOWN INDICATION
  4. BENZODIAZEPINE [Suspect]
     Indication: DRUG USE FOR UNKNOWN INDICATION
  5. FENTANYL CITRATE [Suspect]
     Indication: DRUG USE FOR UNKNOWN INDICATION
     Dosage: TDER
     Route: 062
  6. EPHEDRINE SUL CAP [Suspect]
     Indication: DRUG USE FOR UNKNOWN INDICATION
  7. MIDAZOLAM HCL [Suspect]
     Indication: DRUG USE FOR UNKNOWN INDICATION
  8. IBUPROFEN [Suspect]
     Indication: DRUG USE FOR UNKNOWN INDICATION

REACTIONS (7)
  - ACUTE HEPATIC FAILURE [None]
  - HEART RATE INCREASED [None]
  - HYPOTENSION [None]
  - HYPOTHERMIA [None]
  - INTENTIONAL DRUG MISUSE [None]
  - INTERNATIONAL NORMALISED RATIO INCREASED [None]
  - SOMNOLENCE [None]
